FAERS Safety Report 5606338-4 (Version None)
Quarter: 2008Q1

REPORT INFORMATION
  Report Type: 
  Country: None (occurrence: None)
  Receive Date: 20080129
  Receipt Date: 20070621
  Transmission Date: 20080703
  Serious: No
  Sender: FDA-Public Use
  Company Number: A0661045A

PATIENT
  Sex: Female

DRUGS (1)
  1. WELLBUTRIN [Suspect]
     Indication: DRUG USE FOR UNKNOWN INDICATION
     Dosage: 200MG UNKNOWN
     Route: 065
     Dates: start: 20070101, end: 20070401

REACTIONS (2)
  - ARTHRALGIA [None]
  - TINNITUS [None]
